FAERS Safety Report 10010254 (Version 2)
Quarter: 2014Q2

REPORT INFORMATION
  Report Type: Report from Study
  Country: MX (occurrence: MX)
  Receive Date: 20140313
  Receipt Date: 20140409
  Transmission Date: 20141212
  Serious: Yes (Other)
  Sender: FDA-Public Use
  Company Number: MX-ROCHE-1361979

PATIENT
  Age: 64 Year
  Sex: Female
  Weight: 70 kg

DRUGS (4)
  1. XELODA [Suspect]
     Indication: COLORECTAL CANCER
     Dosage: 14DAYS OF TREATMENT/7DAYS OF REST/3 PLANNED CYCLES
     Route: 065
  2. AVASTIN [Suspect]
     Indication: COLORECTAL CANCER
     Dosage: PLANNED CYCLES OF TREATMENT: 3
     Route: 065
  3. OXALIPLATIN [Concomitant]
     Indication: COLORECTAL CANCER
  4. IRINOTECAN [Concomitant]
     Indication: COLORECTAL CANCER

REACTIONS (1)
  - Disease progression [Unknown]
